FAERS Safety Report 5196234-1 (Version None)
Quarter: 2007Q1

REPORT INFORMATION
  Report Type: 
  Country: None (occurrence: None)
  Receive Date: 20070102
  Receipt Date: 20061229
  Transmission Date: 20070707
  Serious: Yes (Hospitalization)
  Sender: FDA-Public Use
  Company Number: BR-BOEHRINGER INGELHEIM PHARMACEUTICALS, INC.-2006-BP-14912BR

PATIENT
  Age: 80 Year
  Sex: Male

DRUGS (8)
  1. SECOTEX [Suspect]
     Indication: BENIGN PROSTATIC HYPERPLASIA
     Route: 048
     Dates: start: 20061217, end: 20061223
  2. FINASTERIDA [Concomitant]
     Indication: BENIGN PROSTATIC HYPERPLASIA
  3. FRONTAL [Concomitant]
     Indication: SLEEP DISORDER
  4. HIDANTAL [Concomitant]
     Indication: CONVULSION
  5. TEMERON [Concomitant]
     Indication: DEPRESSION
  6. VYTREX [Concomitant]
     Indication: DEPRESSION
  7. ANLODIPINA [Concomitant]
     Indication: HYPERTENSION
  8. CATAPREN [Concomitant]
     Indication: HYPERTENSION

REACTIONS (2)
  - RED BLOOD CELL COUNT DECREASED [None]
  - VISION BLURRED [None]
